FAERS Safety Report 16862734 (Version 2)
Quarter: 2019Q4

REPORT INFORMATION
  Report Type: Report from Study
  Country: US (occurrence: US)
  Receive Date: 20190927
  Receipt Date: 20191223
  Transmission Date: 20200122
  Serious: Yes (Hospitalization)
  Sender: FDA-Public Use
  Company Number: US-OTSUKA-2019_033408

PATIENT
  Age: 58 Year
  Sex: Female

DRUGS (3)
  1. TOLVAPTAN [Suspect]
     Active Substance: TOLVAPTAN
     Indication: CONGENITAL CYSTIC KIDNEY DISEASE
     Dosage: 45 MG, UNK (AM)
     Route: 048
     Dates: start: 20190906, end: 20190920
  2. TOLVAPTAN [Suspect]
     Active Substance: TOLVAPTAN
     Dosage: 15 MG, UNK (PM)
     Route: 048
     Dates: start: 20190906, end: 20190920
  3. NORCO [Concomitant]
     Active Substance: ACETAMINOPHEN\HYDROCODONE BITARTRATE
     Indication: PRODUCT USED FOR UNKNOWN INDICATION
     Dosage: 10-325 MG PER TABLET, UNK
     Route: 065

REACTIONS (9)
  - Fall [Recovered/Resolved]
  - Arthralgia [Unknown]
  - Loss of consciousness [Recovered/Resolved]
  - Chronic kidney disease [Unknown]
  - Confusional state [Recovered/Resolved]
  - Nausea [Not Recovered/Not Resolved]
  - Dehydration [Recovered/Resolved]
  - Systemic inflammatory response syndrome [Recovered/Resolved]
  - Hypotension [Not Recovered/Not Resolved]

NARRATIVE: CASE EVENT DATE: 20190909
